FAERS Safety Report 9267909 (Version 1)
Quarter: 2013Q2

REPORT INFORMATION
  Report Type: Spontaneous
  Country: FI (occurrence: FI)
  Receive Date: 20130502
  Receipt Date: 20130502
  Transmission Date: 20140414
  Serious: Yes (Other)
  Sender: FDA-Public Use
  Company Number: FI-ABBOTT-13P-055-1082718-00

PATIENT
  Age: 36 Year
  Sex: 0

DRUGS (1)
  1. HUMIRA [Suspect]
     Indication: PRODUCT USED FOR UNKNOWN INDICATION
     Dates: start: 201006

REACTIONS (3)
  - Sciatica [Recovered/Resolved]
  - Monoplegia [Unknown]
  - Impaired work ability [Recovered/Resolved]
